FAERS Safety Report 7245623-X (Version None)
Quarter: 2011Q1

REPORT INFORMATION
  Report Type: 
  Country: None (occurrence: None)
  Receive Date: 20110126
  Receipt Date: 20110117
  Transmission Date: 20110831
  Serious: Yes (Hospitalization)
  Sender: FDA-Public Use
  Company Number: PHHY2011JP04719

PATIENT
  Age: 44 Year
  Sex: Female

DRUGS (2)
  1. NEORAL [Suspect]
     Indication: DERMATITIS ATOPIC
     Route: 048
  2. CLARITIN [Concomitant]
     Route: 048

REACTIONS (2)
  - LIVER DISORDER [None]
  - JAUNDICE [None]
